FAERS Safety Report 14174538 (Version 1)
Quarter: 2017Q4

REPORT INFORMATION
  Report Type: Report from Study
  Country: None (occurrence: US)
  Receive Date: 20171109
  Receipt Date: 20171109
  Transmission Date: 20180321
  Serious: Yes (Other)
  Sender: FDA-Public Use
  Company Number: US-ABBVIE-17K-163-2035885-00

PATIENT
  Sex: Female
  Weight: 83.54 kg

DRUGS (1)
  1. HUMIRA [Suspect]
     Active Substance: ADALIMUMAB
     Indication: HIDRADENITIS
     Route: 058
     Dates: start: 20170325

REACTIONS (9)
  - Hidradenitis [Recovered/Resolved]
  - Radiculopathy [Recovered/Resolved]
  - Paranasal sinus hypersecretion [Unknown]
  - Cough [Unknown]
  - Hypoaesthesia [Unknown]
  - Nodule [Unknown]
  - Fatigue [Recovered/Resolved]
  - Pruritus [Unknown]
  - Radicular pain [Recovered/Resolved]

NARRATIVE: CASE EVENT DATE: 2017
